FAERS Safety Report 12119724 (Version 2)
Quarter: 2016Q1

REPORT INFORMATION
  Report Type: Spontaneous
  Country: US (occurrence: US)
  Receive Date: 20160226
  Receipt Date: 20160308
  Transmission Date: 20160526
  Serious: Yes (Other)
  Sender: FDA-Public Use
  Company Number: PHHY2015US030724

PATIENT
  Age: 50 Year
  Sex: Male

DRUGS (15)
  1. DILAUDID [Suspect]
     Active Substance: HYDROMORPHONE HYDROCHLORIDE
     Dosage: 7.99 MG, QD (9.5 MG/ML)
     Route: 037
  2. DILAUDID [Suspect]
     Active Substance: HYDROMORPHONE HYDROCHLORIDE
     Dosage: 5 MG, QD
     Route: 037
  3. CYCLOBENZAPRINE [Suspect]
     Active Substance: CYCLOBENZAPRINE
     Indication: PRODUCT USED FOR UNKNOWN INDICATION
     Dosage: UNK
     Route: 065
  4. DILAUDID [Suspect]
     Active Substance: HYDROMORPHONE HYDROCHLORIDE
     Indication: PRODUCT USED FOR UNKNOWN INDICATION
     Dosage: UNK, (CONCENTRATION 5.9 (UNIT UNSPECIFIED))
     Route: 037
  5. BUPIVACAINE [Suspect]
     Active Substance: BUPIVACAINE
     Indication: PRODUCT USED FOR UNKNOWN INDICATION
     Route: 037
  6. BACLOFEN INTRATHECAL [Suspect]
     Active Substance: BACLOFEN
     Indication: BACK PAIN
     Dosage: 52.5 UG, QD (100 MCG/ML)
     Route: 037
  7. METHADONE [Suspect]
     Active Substance: METHADONE HYDROCHLORIDE
     Indication: PRODUCT USED FOR UNKNOWN INDICATION
     Dosage: UNK
     Route: 065
  8. DIAZEPAM. [Suspect]
     Active Substance: DIAZEPAM
     Indication: PRODUCT USED FOR UNKNOWN INDICATION
     Dosage: UNK
     Route: 065
  9. CLONIDINE. [Suspect]
     Active Substance: CLONIDINE
     Indication: PRODUCT USED FOR UNKNOWN INDICATION
     Route: 037
  10. OXYCODONE [Suspect]
     Active Substance: OXYCODONE
     Indication: PRODUCT USED FOR UNKNOWN INDICATION
     Dosage: UNK
     Route: 065
  11. BACLOFEN INTRATHECAL [Suspect]
     Active Substance: BACLOFEN
     Dosage: 42 UG, QD (100 MCG/ML)
     Route: 037
  12. BACLOFEN INTRATHECAL [Suspect]
     Active Substance: BACLOFEN
     Dosage: 52.6 UG, QD
     Route: 037
  13. METFORMIN [Suspect]
     Active Substance: METFORMIN HYDROCHLORIDE
     Indication: PRODUCT USED FOR UNKNOWN INDICATION
     Dosage: UNK
     Route: 065
  14. DILAUDID [Suspect]
     Active Substance: HYDROMORPHONE HYDROCHLORIDE
     Dosage: 4 MG, QD (9.5 MG/ML)
     Route: 037
  15. DILAUDID [Suspect]
     Active Substance: HYDROMORPHONE HYDROCHLORIDE
     Dosage: 4.9 MG, QD
     Route: 037

REACTIONS (25)
  - Arachnoiditis [Unknown]
  - No therapeutic response [Unknown]
  - Pain in extremity [Unknown]
  - Spinal cord injury cervical [Unknown]
  - Spinal pain [Unknown]
  - Hypoaesthesia [Unknown]
  - Overdose [Unknown]
  - Sleep disorder [Unknown]
  - Spinal cord compression [Unknown]
  - Burning sensation [Unknown]
  - Muscle spasms [Unknown]
  - Somnolence [Unknown]
  - Neurological symptom [Unknown]
  - Tachycardia [Unknown]
  - Medical device site mass [Unknown]
  - Pain [Unknown]
  - Hypertension [Unknown]
  - Muscular weakness [Unknown]
  - Thyroid neoplasm [Unknown]
  - Performance status decreased [Unknown]
  - Dizziness [Unknown]
  - Therapeutic response decreased [Unknown]
  - Neck pain [Unknown]
  - Emotional distress [Unknown]
  - Back pain [Unknown]

NARRATIVE: CASE EVENT DATE: 201501
